FAERS Safety Report 7585344-7 (Version None)
Quarter: 2011Q3

REPORT INFORMATION
  Report Type: 
  Country: None (occurrence: None)
  Receive Date: 20110701
  Receipt Date: 20090930
  Transmission Date: 20111222
  Serious: Yes (Other)
  Sender: FDA-Public Use
  Company Number: US-BAYER-2011-006013

PATIENT
  Age: 54 Year
  Sex: Male
  Weight: 83.9 kg

DRUGS (13)
  1. LASIX [Concomitant]
     Dosage: 40 MG, BID
     Route: 048
  2. INSULIN LISPRO [Concomitant]
     Route: 058
  3. LIPITOR [Concomitant]
     Dosage: 40 MG, UNK
     Route: 048
  4. CEFAZOLIN [Concomitant]
     Dosage: 2 MG, UNK
  5. PROTAMINE SULFATE [Concomitant]
  6. DIOVAN [Concomitant]
     Dosage: 320 MG, UNK
     Route: 048
  7. ACETYLSALICYLIC ACID SRT [Concomitant]
     Dosage: 325 MG, QD
     Route: 048
  8. SUCCINYLCHOLINE CHLORIDE [Concomitant]
     Dosage: 15 MG, UNK
  9. GLIPIZIDE [Concomitant]
     Dosage: 5 MG, QD
     Route: 048
  10. VERSED [Concomitant]
     Dosage: 5 MG
     Route: 042
  11. TRASYLOL [Suspect]
     Indication: AORTIC VALVE REPLACEMENT
     Dosage: 199 ML, UNK
     Route: 042
     Dates: start: 20050912, end: 20050912
  12. NIFEDIPINE [Concomitant]
     Dosage: 60 MG, BID
     Route: 048
  13. VERSED [Concomitant]
     Dosage: 2 MG, UNK
     Route: 030

REACTIONS (13)
  - MULTI-ORGAN FAILURE [None]
  - NERVOUSNESS [None]
  - UNEVALUABLE EVENT [None]
  - DEPRESSION [None]
  - FEAR OF DEATH [None]
  - ANHEDONIA [None]
  - ANXIETY [None]
  - FEAR [None]
  - RENAL INJURY [None]
  - PAIN [None]
  - EMOTIONAL DISTRESS [None]
  - RENAL FAILURE [None]
  - INJURY [None]
